FAERS Safety Report 6366618-4 (Version None)
Quarter: 2009Q3

REPORT INFORMATION
  Report Type: 
  Country: None (occurrence: None)
  Receive Date: 20090921
  Receipt Date: 20090908
  Transmission Date: 20100115
  Serious: No
  Sender: FDA-Public Use
  Company Number: PHHY2009BR22825

PATIENT
  Age: 25 Year
  Sex: Male
  Weight: 70 kg

DRUGS (19)
  1. LEPONEX [Suspect]
     Indication: SCHIZOPHRENIA
     Dosage: 3 DF, QD
     Route: 048
     Dates: start: 20090416
  2. LEPONEX [Suspect]
     Dosage: 12,5MG DAILY FOR 2 DAYS
  3. LEPONEX [Suspect]
     Dosage: 25MG DAILY FOR 2 DAYS
  4. LEPONEX [Suspect]
     Dosage: 50MG DAILY FOR 2 DAYS
  5. LEPONEX [Suspect]
     Dosage: 75MG DAILY FOR 2 DAYS
  6. LEPONEX [Suspect]
     Dosage: 100MG DAILY FOR 2 DAYS
  7. LEPONEX [Suspect]
     Dosage: 125MG DAILY FOR 2 DAYS
  8. LEPONEX [Suspect]
     Dosage: 150MG DAILY FOR 2 DAYS
  9. LEPONEX [Suspect]
     Dosage: 175MG DAILY FOR 2 DAYS
  10. LEPONEX [Suspect]
     Dosage: 200MG DAILY FOR 2 DAYS
  11. LEPONEX [Suspect]
     Dosage: 225MG DAILY FOR 2 DAYS
  12. LEPONEX [Suspect]
     Dosage: 250MG DAILY FOR 2 DAYS
  13. LEPONEX [Suspect]
     Dosage: 275MG DAILY FOR 2 DAYS
  14. LEPONEX [Suspect]
     Dosage: 1 TABLET IN THE MORNING AND 2 TABLETS AT NIGHT
     Dates: start: 20090510
  15. LEPONEX [Suspect]
     Dosage: 300MG DAILY
  16. LEPONEX [Suspect]
     Dosage: 1 DF, BID
     Dates: start: 20090905
  17. LEPONEX [Suspect]
     Dosage: 2 TABLETS IN THE MORNING AND 1 TABLET AT NIGHT
     Dates: start: 20090906
  18. DEPAKOTE [Concomitant]
     Dosage: 3 DF, QD
     Route: 048
     Dates: start: 20081201
  19. SEROQUEL [Concomitant]

REACTIONS (8)
  - BLOOD CHOLESTEROL INCREASED [None]
  - EOSINOPHIL COUNT INCREASED [None]
  - POLLAKIURIA [None]
  - REFLUX OESOPHAGITIS [None]
  - SALIVARY HYPERSECRETION [None]
  - SCREAMING [None]
  - SLEEP DISORDER [None]
  - URINARY INCONTINENCE [None]
